FAERS Safety Report 15231269 (Version 1)
Quarter: 2018Q3

REPORT INFORMATION
  Report Type: Spontaneous
  Country: TW (occurrence: TW)
  Receive Date: 20180802
  Receipt Date: 20180802
  Transmission Date: 20181010
  Serious: Yes (Hospitalization)
  Sender: FDA-Public Use
  Company Number: TW-MYLANLABS-2018M1057188

PATIENT
  Age: 58 Year
  Sex: Male

DRUGS (3)
  1. OXALIPLATIN. [Suspect]
     Active Substance: OXALIPLATIN
     Indication: COLORECTAL ADENOCARCINOMA
     Dosage: 11 CYCLES; FOLFOX CHEMOTHERAPY
     Route: 065
  2. 5?FLUOROURACIL                     /00098801/ [Concomitant]
     Active Substance: FLUOROURACIL
     Indication: COLORECTAL ADENOCARCINOMA
     Dosage: 11 CYCLES; FOLFOX CHEMOTHERAPY
     Route: 065
  3. LEUCOVORIN                         /00566701/ [Concomitant]
     Active Substance: LEUCOVORIN
     Indication: COLORECTAL ADENOCARCINOMA
     Dosage: 11 CYCLES; FOLFOX CHEMOTHERAPY
     Route: 065

REACTIONS (3)
  - Pulmonary fibrosis [Recovering/Resolving]
  - Alveolitis allergic [Recovering/Resolving]
  - Bronchiectasis [Recovering/Resolving]
